FAERS Safety Report 5096890-2 (Version None)
Quarter: 2006Q3

REPORT INFORMATION
  Report Type: 
  Country: None (occurrence: None)
  Receive Date: 20060901
  Receipt Date: 20060901
  Transmission Date: 20061208
  Serious: Yes (Life-Threatening, Hospitalization, Other)
  Sender: FDA-Public Use
  Company Number: None

PATIENT
  Age: 52 Year
  Sex: Male
  Weight: 113.3993 kg

DRUGS (2)
  1. EFFEXOR [Suspect]
     Indication: ANXIETY
     Dosage: 150 MGS.  3 TIMES A DAY 450M
     Dates: start: 19991001, end: 20040630
  2. EFFEXOR [Suspect]
     Indication: HEADACHE
     Dosage: 150 MGS.  3 TIMES A DAY 450M
     Dates: start: 19991001, end: 20040630

REACTIONS (8)
  - ANXIETY [None]
  - DEPRESSION [None]
  - DIZZINESS [None]
  - HOMICIDAL IDEATION [None]
  - MANIA [None]
  - PANIC ATTACK [None]
  - SUICIDAL IDEATION [None]
  - SUICIDE ATTEMPT [None]
